FAERS Safety Report 8076362-3 (Version None)
Quarter: 2012Q1

REPORT INFORMATION
  Report Type: 
  Country: None (occurrence: None)
  Receive Date: 20120127
  Receipt Date: 20120119
  Transmission Date: 20120608
  Serious: Yes (Hospitalization)
  Sender: FDA-Public Use
  Company Number: US-ROCHE-1033181

PATIENT
  Sex: Female

DRUGS (1)
  1. RITUXAN [Suspect]
     Indication: PRODUCT USED FOR UNKNOWN INDICATION
     Route: 042

REACTIONS (13)
  - BLOOD PRESSURE DECREASED [None]
  - CARDIAC FAILURE CONGESTIVE [None]
  - ANAPHYLACTIC REACTION [None]
  - BONE PAIN [None]
  - FEAR [None]
  - LYMPHOEDEMA [None]
  - HYPERHIDROSIS [None]
  - PNEUMONIA [None]
  - SUICIDAL IDEATION [None]
  - CHEST PAIN [None]
  - LYMPHADENOPATHY [None]
  - DEPRESSION [None]
  - LUNG DISORDER [None]
